FAERS Safety Report 22104866 (Version 2)
Quarter: 2023Q1

REPORT INFORMATION
  Report Type: Report from Study
  Country: FR (occurrence: FR)
  Receive Date: 20230316
  Receipt Date: 20230328
  Transmission Date: 20230417
  Serious: Yes (Death, Other)
  Sender: FDA-Public Use
  Company Number: FR-TEVA-2023-FR-2866144

PATIENT
  Sex: Female

DRUGS (3)
  1. PACLITAXEL [Suspect]
     Active Substance: PACLITAXEL
     Indication: Angiosarcoma
     Route: 065
  2. DOXORUBICIN [Suspect]
     Active Substance: DOXORUBICIN
     Indication: Angiosarcoma
     Route: 065
  3. REGORAFENIB [Concomitant]
     Active Substance: REGORAFENIB
     Indication: Angiosarcoma
     Route: 065

REACTIONS (2)
  - Cardiac failure [Fatal]
  - Drug ineffective [Unknown]
